FAERS Safety Report 7712971-6 (Version None)
Quarter: 2011Q3

REPORT INFORMATION
  Report Type: 
  Country: None (occurrence: None)
  Receive Date: 20110826
  Receipt Date: 20110818
  Transmission Date: 20111222
  Serious: Yes (Other)
  Sender: FDA-Public Use
  Company Number: CA-JNJFOC-20110809838

PATIENT
  Sex: Male
  Weight: 81.2 kg

DRUGS (3)
  1. CRESTON [Concomitant]
  2. PANTOPRAZOLE SODIUM [Concomitant]
  3. REMICADE [Suspect]
     Indication: CROHN'S DISEASE
     Route: 042

REACTIONS (1)
  - SUPRAVENTRICULAR TACHYCARDIA [None]
